FAERS Safety Report 13834769 (Version 2)
Quarter: 2017Q3

REPORT INFORMATION
  Report Type: Spontaneous
  Country: US (occurrence: US)
  Receive Date: 20170804
  Receipt Date: 20170825
  Transmission Date: 20171127
  Serious: Yes (Death, Hospitalization)
  Sender: FDA-Public Use
  Company Number: US-NOVOPROD-556561

PATIENT
  Age: 53 Year
  Sex: Female

DRUGS (2)
  1. NOVOLIN 70/30 [Suspect]
     Active Substance: INSULIN HUMAN
     Indication: TYPE 1 DIABETES MELLITUS
     Dosage: 28 U, QD IN AM
     Route: 058
     Dates: start: 1985
  2. NOVOLIN 70/30 [Suspect]
     Active Substance: INSULIN HUMAN
     Dosage: 12 U, QD IN PM
     Route: 058
     Dates: start: 1985

REACTIONS (5)
  - Pneumonia [Unknown]
  - Product quality issue [Unknown]
  - Diabetic coma [Unknown]
  - Death [Fatal]
  - Renal failure [Unknown]

NARRATIVE: CASE EVENT DATE: 201705
